FAERS Safety Report 4353331-8 (Version None)
Quarter: 2004Q2

REPORT INFORMATION
  Report Type: 
  Country: None (occurrence: None)
  Receive Date: 20040429
  Receipt Date: 20040419
  Transmission Date: 20050107
  Serious: Yes (Hospitalization, Other)
  Sender: FDA-Public Use
  Company Number: US069733

PATIENT
  Age: 28 Year
  Sex: Male
  Weight: 117.8 kg

DRUGS (8)
  1. EPOGEN [Suspect]
     Indication: DIALYSIS
     Dosage: 80000 U, 3 IN 1 WEEKS, IV
     Route: 042
     Dates: start: 20031206, end: 20040311
  2. CEFTAZIDIME [Concomitant]
  3. SEVELAMER HCL [Concomitant]
  4. OMEPRAZOLE [Concomitant]
  5. POLYSARRARIDE IRON [Concomitant]
  6. METOPROLOL [Concomitant]
  7. WARAFRIN SODIUM [Concomitant]
  8. MYCOPHENOLATE MOFETIL [Concomitant]

REACTIONS (8)
  - BLOOD ALBUMIN DECREASED [None]
  - BLOOD PARATHYROID HORMONE INCREASED [None]
  - CONDITION AGGRAVATED [None]
  - DRUG INEFFECTIVE [None]
  - FAECAL OCCULT BLOOD POSITIVE [None]
  - HAEMOGLOBIN DECREASED [None]
  - IRON BINDING CAPACITY TOTAL DECREASED [None]
  - SERUM FERRITIN INCREASED [None]
